FAERS Safety Report 4663459-0 (Version None)
Quarter: 2005Q2

REPORT INFORMATION
  Report Type: 
  Country: None (occurrence: None)
  Receive Date: 20050511
  Receipt Date: 20050123
  Transmission Date: 20051028
  Serious: Yes (Other)
  Sender: FDA-Public Use
  Company Number: 393403

PATIENT
  Age: 59 Year
  Sex: Female
  Weight: 59.013 kg

DRUGS (6)
  1. PEGASYS [Suspect]
     Indication: HEPATITIS C
     Dosage: 180 MCG 1 PER WEEK SUBCUTANEOUS
     Route: 058
     Dates: start: 20040806, end: 20050121
  2. COPEGUS [Suspect]
     Indication: HEPATITIS C
     Dosage: 800 DAILY ORAL
     Route: 048
     Dates: start: 20040806
  3. FUROSEMIDE [Concomitant]
  4. K-DUR 10 [Concomitant]
  5. VERAPAMIL [Concomitant]
  6. DIGOXIN [Concomitant]

REACTIONS (6)
  - INSOMNIA [None]
  - NAUSEA [None]
  - RED BLOOD CELL COUNT DECREASED [None]
  - VOMITING [None]
  - WEIGHT DECREASED [None]
  - WHITE BLOOD CELL COUNT DECREASED [None]
